FAERS Safety Report 25359497 (Version 1)
Quarter: 2025Q2

REPORT INFORMATION
  Report Type: Report from Study
  Country: US (occurrence: US)
  Receive Date: 20250526
  Receipt Date: 20250526
  Transmission Date: 20250717
  Serious: Yes (Other)
  Sender: TAKEDA
  Company Number: US-TAKEDA-2025TUS048394

PATIENT
  Sex: Female
  Weight: 85.261 kg

DRUGS (14)
  1. LANADELUMAB [Suspect]
     Active Substance: LANADELUMAB
     Indication: Immune system disorder
     Dosage: 300 MILLIGRAM, Q2WEEKS
  2. LANADELUMAB [Suspect]
     Active Substance: LANADELUMAB
  3. LANADELUMAB [Suspect]
     Active Substance: LANADELUMAB
  4. HUMULIN R [Concomitant]
     Active Substance: INSULIN HUMAN
  5. MOUNJARO [Concomitant]
     Active Substance: TIRZEPATIDE
  6. EPINEPHRINE [Concomitant]
     Active Substance: EPINEPHRINE
  7. JARDIANCE [Concomitant]
     Active Substance: EMPAGLIFLOZIN
  8. ICATIBANT [Concomitant]
     Active Substance: ICATIBANT ACETATE
  9. LOSARTAN POTASSIUM [Concomitant]
     Active Substance: LOSARTAN POTASSIUM
  10. FIRAZYR [Concomitant]
     Active Substance: ICATIBANT ACETATE
  11. VITAMIN D3 [Concomitant]
     Active Substance: CHOLECALCIFEROL
  12. FEXOFENADINE HYDROCHLORIDE [Concomitant]
     Active Substance: FEXOFENADINE HYDROCHLORIDE
  13. HYDROXYZINE HYDROCHLORIDE [Concomitant]
     Active Substance: HYDROXYZINE HYDROCHLORIDE
  14. ONDANSETRON HYDROCHLORIDE [Concomitant]
     Active Substance: ONDANSETRON HYDROCHLORIDE

REACTIONS (1)
  - Diabetes mellitus [Unknown]
